FAERS Safety Report 19101507 (Version 3)
Quarter: 2022Q1

REPORT INFORMATION
  Report Type: Spontaneous
  Country: PT (occurrence: PT)
  Receive Date: 20210407
  Receipt Date: 20220322
  Transmission Date: 20220424
  Serious: Yes (Other)
  Sender: FDA-Public Use
  Company Number: PT-MYLANLABS-2021M1020367

PATIENT
  Age: 51 Year
  Sex: Female

DRUGS (90)
  1. VENLAFAXINE HYDROCHLORIDE [Suspect]
     Active Substance: VENLAFAXINE HYDROCHLORIDE
     Indication: Skin disorder
     Dosage: UNK
  2. VENLAFAXINE HYDROCHLORIDE [Suspect]
     Active Substance: VENLAFAXINE HYDROCHLORIDE
     Indication: Complex regional pain syndrome
  3. VENLAFAXINE HYDROCHLORIDE [Suspect]
     Active Substance: VENLAFAXINE HYDROCHLORIDE
     Indication: Sleep disorder
  4. ETORICOXIB [Suspect]
     Active Substance: ETORICOXIB
     Indication: Skin disorder
     Dosage: UNK
  5. ETORICOXIB [Suspect]
     Active Substance: ETORICOXIB
     Indication: Complex regional pain syndrome
  6. ETORICOXIB [Suspect]
     Active Substance: ETORICOXIB
     Indication: Sleep disorder
  7. IBUPROFEN [Suspect]
     Active Substance: IBUPROFEN
     Indication: Complex regional pain syndrome
     Dosage: UNK
  8. IBUPROFEN [Suspect]
     Active Substance: IBUPROFEN
     Indication: Skin disorder
  9. IBUPROFEN [Suspect]
     Active Substance: IBUPROFEN
     Indication: Sleep disorder
  10. DULOXETINE [Suspect]
     Active Substance: DULOXETINE
     Indication: Complex regional pain syndrome
     Dosage: UNK
  11. DULOXETINE [Suspect]
     Active Substance: DULOXETINE
     Indication: Sleep disorder
  12. DULOXETINE [Suspect]
     Active Substance: DULOXETINE
     Indication: Skin disorder
  13. DULOXETINE HYDROCHLORIDE [Suspect]
     Active Substance: DULOXETINE HYDROCHLORIDE
     Indication: Sleep disorder
     Dosage: 30 MILLIGRAM
  14. DULOXETINE HYDROCHLORIDE [Suspect]
     Active Substance: DULOXETINE HYDROCHLORIDE
     Indication: Complex regional pain syndrome
     Dosage: 60 MILLIGRAM
  15. DULOXETINE HYDROCHLORIDE [Suspect]
     Active Substance: DULOXETINE HYDROCHLORIDE
     Indication: Skin disorder
  16. PALEXIA [Suspect]
     Active Substance: TAPENTADOL HYDROCHLORIDE
     Indication: Sleep disorder
     Dosage: 100 MILLIGRAM
  17. PALEXIA [Suspect]
     Active Substance: TAPENTADOL HYDROCHLORIDE
     Indication: Skin disorder
     Dosage: 50 MILLIGRAM
  18. PALEXIA [Suspect]
     Active Substance: TAPENTADOL HYDROCHLORIDE
     Indication: Complex regional pain syndrome
  19. DEFLAZACORT [Suspect]
     Active Substance: DEFLAZACORT
     Indication: Complex regional pain syndrome
     Dosage: UNK
  20. DEFLAZACORT [Suspect]
     Active Substance: DEFLAZACORT
     Indication: Sleep disorder
  21. DEFLAZACORT [Suspect]
     Active Substance: DEFLAZACORT
     Indication: Skin disorder
  22. AMITRIPTYLINE [Suspect]
     Active Substance: AMITRIPTYLINE
     Indication: Product used for unknown indication
     Dosage: UNK
  23. ACETAMINOPHEN\CODEINE PHOSPHATE [Suspect]
     Active Substance: ACETAMINOPHEN\CODEINE PHOSPHATE
     Indication: Complex regional pain syndrome
     Dosage: 30/500MG THREE TIMES DAILY
  24. PHENYTOIN [Suspect]
     Active Substance: PHENYTOIN
     Indication: Complex regional pain syndrome
     Dosage: 100 MILLIGRAM, BID
  25. LYRICA [Suspect]
     Active Substance: PREGABALIN
     Indication: Complex regional pain syndrome
     Dosage: 300 MILLIGRAM, BID
  26. METAMIZOL [Suspect]
     Active Substance: METAMIZOLE SODIUM
     Indication: Complex regional pain syndrome
     Dosage: 575 MILLIGRAM, QD
  27. CLONAZEPAM [Suspect]
     Active Substance: CLONAZEPAM
     Indication: Complex regional pain syndrome
     Dosage: 0.5 MILLIGRAM, QD
  28. VENLAFAXINE HYDROCHLORIDE [Suspect]
     Active Substance: VENLAFAXINE HYDROCHLORIDE
     Indication: Complex regional pain syndrome
     Dosage: 150 MILLIGRAM, QD
  29. VENLAFAXINE HYDROCHLORIDE [Suspect]
     Active Substance: VENLAFAXINE HYDROCHLORIDE
     Indication: Skin disorder
  30. VENLAFAXINE HYDROCHLORIDE [Suspect]
     Active Substance: VENLAFAXINE HYDROCHLORIDE
     Indication: Sleep disorder
  31. CYCLOBENZAPRINE [Suspect]
     Active Substance: CYCLOBENZAPRINE
     Indication: Complex regional pain syndrome
     Dosage: 10 MILLIGRAM, QD
  32. ACEMETACIN [Suspect]
     Active Substance: ACEMETACIN
     Indication: Complex regional pain syndrome
     Dosage: 90 MILLIGRAM, BID
  33. TRAZODONE [Suspect]
     Active Substance: TRAZODONE HYDROCHLORIDE
     Indication: Complex regional pain syndrome
     Dosage: 150 MILLIGRAM, QD
  34. ETORICOXIB [Suspect]
     Active Substance: ETORICOXIB
     Indication: Complex regional pain syndrome
     Dosage: UNK
  35. ETORICOXIB [Suspect]
     Active Substance: ETORICOXIB
     Indication: Sleep disorder
  36. ETORICOXIB [Suspect]
     Active Substance: ETORICOXIB
     Indication: Skin disorder
  37. NORTRIPTYLINE [Suspect]
     Active Substance: NORTRIPTYLINE
     Indication: Sleep disorder
     Dosage: UNK
  38. NORTRIPTYLINE [Suspect]
     Active Substance: NORTRIPTYLINE
     Indication: Skin disorder
  39. NORTRIPTYLINE [Suspect]
     Active Substance: NORTRIPTYLINE
     Indication: Complex regional pain syndrome
  40. AMITRIPTYLINE HYDROCHLORIDE [Suspect]
     Active Substance: AMITRIPTYLINE HYDROCHLORIDE
     Indication: Complex regional pain syndrome
     Dosage: 25 MILLIGRAM
  41. AMITRIPTYLINE HYDROCHLORIDE [Suspect]
     Active Substance: AMITRIPTYLINE HYDROCHLORIDE
     Indication: Skin disorder
     Dosage: 10 MILLIGRAM
  42. AMITRIPTYLINE HYDROCHLORIDE [Suspect]
     Active Substance: AMITRIPTYLINE HYDROCHLORIDE
     Indication: Sleep disorder
  43. AMITRIPTYLINE HYDROCHLORIDE [Suspect]
     Active Substance: AMITRIPTYLINE HYDROCHLORIDE
     Indication: Product used for unknown indication
     Dosage: UNK
  44. BUPRENORPHINE [Suspect]
     Active Substance: BUPRENORPHINE
     Indication: Skin disorder
     Dosage: 37.5 MCG/H/ TRANSDERMAL
  45. BUPRENORPHINE [Suspect]
     Active Substance: BUPRENORPHINE
     Indication: Complex regional pain syndrome
  46. BUPRENORPHINE [Suspect]
     Active Substance: BUPRENORPHINE
     Indication: Sleep disorder
  47. DIAZEPAM [Suspect]
     Active Substance: DIAZEPAM
     Indication: Skin disorder
     Dosage: UNK
  48. DIAZEPAM [Suspect]
     Active Substance: DIAZEPAM
     Indication: Sleep disorder
  49. DIAZEPAM [Suspect]
     Active Substance: DIAZEPAM
     Indication: Complex regional pain syndrome
  50. ACETAMINOPHEN [Suspect]
     Active Substance: ACETAMINOPHEN
     Indication: Complex regional pain syndrome
     Dosage: UNK
  51. ACETAMINOPHEN [Suspect]
     Active Substance: ACETAMINOPHEN
     Indication: Skin disorder
  52. ACETAMINOPHEN [Suspect]
     Active Substance: ACETAMINOPHEN
     Indication: Sleep disorder
  53. DEFLAZACORT [Suspect]
     Active Substance: DEFLAZACORT
     Indication: Sleep disorder
     Dosage: UNK
  54. DEFLAZACORT [Suspect]
     Active Substance: DEFLAZACORT
     Indication: Complex regional pain syndrome
  55. DEFLAZACORT [Suspect]
     Active Substance: DEFLAZACORT
     Indication: Skin disorder
  56. DEFLAZACORT [Suspect]
     Active Substance: DEFLAZACORT
     Indication: Skin disorder
     Dosage: UNK
  57. DEFLAZACORT [Suspect]
     Active Substance: DEFLAZACORT
     Indication: Complex regional pain syndrome
  58. DEFLAZACORT [Suspect]
     Active Substance: DEFLAZACORT
     Indication: Sleep disorder
  59. NALOXONE HYDROCHLORIDE\OXYCODONE HYDROCHLORIDE [Suspect]
     Active Substance: NALOXONE HYDROCHLORIDE\OXYCODONE HYDROCHLORIDE
     Indication: Skin disorder
     Dosage: UNK
  60. NALOXONE HYDROCHLORIDE\OXYCODONE HYDROCHLORIDE [Suspect]
     Active Substance: NALOXONE HYDROCHLORIDE\OXYCODONE HYDROCHLORIDE
     Indication: Sleep disorder
  61. NALOXONE HYDROCHLORIDE\OXYCODONE HYDROCHLORIDE [Suspect]
     Active Substance: NALOXONE HYDROCHLORIDE\OXYCODONE HYDROCHLORIDE
     Indication: Complex regional pain syndrome
  62. TRENTAL [Suspect]
     Active Substance: PENTOXIFYLLINE
     Indication: Skin disorder
     Dosage: UNK
  63. TRENTAL [Suspect]
     Active Substance: PENTOXIFYLLINE
     Indication: Sleep disorder
  64. TRENTAL [Suspect]
     Active Substance: PENTOXIFYLLINE
     Indication: Complex regional pain syndrome
  65. NAPROSYN [Suspect]
     Active Substance: NAPROXEN
     Indication: Complex regional pain syndrome
     Dosage: 1000 MILLIGRAM, QD
  66. NAPROSYN [Suspect]
     Active Substance: NAPROXEN
     Indication: Skin disorder
     Dosage: 100 MILLIGRAM, QD
  67. NAPROSYN [Suspect]
     Active Substance: NAPROXEN
     Indication: Sleep disorder
  68. FOSAVANCE [Suspect]
     Active Substance: ALENDRONATE SODIUM\CHOLECALCIFEROL
     Indication: Complex regional pain syndrome
     Dosage: UNK
  69. FOSAVANCE [Suspect]
     Active Substance: ALENDRONATE SODIUM\CHOLECALCIFEROL
     Indication: Sleep disorder
  70. FOSAVANCE [Suspect]
     Active Substance: ALENDRONATE SODIUM\CHOLECALCIFEROL
     Indication: Skin disorder
  71. TRAZODONE HYDROCHLORIDE [Suspect]
     Active Substance: TRAZODONE HYDROCHLORIDE
     Indication: Complex regional pain syndrome
     Dosage: UNK
  72. TRAZODONE HYDROCHLORIDE [Suspect]
     Active Substance: TRAZODONE HYDROCHLORIDE
     Indication: Sleep disorder
     Dosage: 150 MILLIGRAM, DAILY
  73. TRAZODONE HYDROCHLORIDE [Suspect]
     Active Substance: TRAZODONE HYDROCHLORIDE
     Indication: Skin disorder
  74. LYRICA [Suspect]
     Active Substance: PREGABALIN
     Indication: Complex regional pain syndrome
     Dosage: 600 MILLIGRAM, QD
  75. LYRICA [Suspect]
     Active Substance: PREGABALIN
     Indication: Skin disorder
     Dosage: 75 MILLIGRAM, QD
  76. LYRICA [Suspect]
     Active Substance: PREGABALIN
     Indication: Sleep disorder
     Dosage: 150 MILLIGRAM, QD
  77. PENTOSAN POLYSULFATE SODIUM [Suspect]
     Active Substance: PENTOSAN POLYSULFATE SODIUM
     Indication: Sleep disorder
     Dosage: UNK
  78. PENTOSAN POLYSULFATE SODIUM [Suspect]
     Active Substance: PENTOSAN POLYSULFATE SODIUM
     Indication: Complex regional pain syndrome
  79. PENTOSAN POLYSULFATE SODIUM [Suspect]
     Active Substance: PENTOSAN POLYSULFATE SODIUM
     Indication: Skin disorder
  80. DULOXETINE [Suspect]
     Active Substance: DULOXETINE
     Indication: Product used for unknown indication
     Dosage: UNK
  81. PALEXIA [Suspect]
     Active Substance: TAPENTADOL HYDROCHLORIDE
     Indication: Product used for unknown indication
     Dosage: UNK
  82. VENLAFAXINE HYDROCHLORIDE [Suspect]
     Active Substance: VENLAFAXINE HYDROCHLORIDE
     Indication: Sleep disorder
     Dosage: 150 MILLIGRAM, QD
  83. VENLAFAXINE HYDROCHLORIDE [Suspect]
     Active Substance: VENLAFAXINE HYDROCHLORIDE
     Indication: Skin disorder
  84. VENLAFAXINE HYDROCHLORIDE [Suspect]
     Active Substance: VENLAFAXINE HYDROCHLORIDE
     Indication: Complex regional pain syndrome
  85. IBUPROFEN [Suspect]
     Active Substance: IBUPROFEN
     Indication: Skin disorder
     Dosage: UNK
  86. IBUPROFEN [Suspect]
     Active Substance: IBUPROFEN
     Indication: Complex regional pain syndrome
  87. IBUPROFEN [Suspect]
     Active Substance: IBUPROFEN
     Indication: Sleep disorder
  88. METAMIZOLE MAGNESIUM [Suspect]
     Active Substance: METAMIZOLE MAGNESIUM
     Indication: Sleep disorder
     Dosage: UNK
  89. METAMIZOLE MAGNESIUM [Suspect]
     Active Substance: METAMIZOLE MAGNESIUM
     Indication: Complex regional pain syndrome
  90. METAMIZOLE MAGNESIUM [Suspect]
     Active Substance: METAMIZOLE MAGNESIUM
     Indication: Skin disorder

REACTIONS (19)
  - Major depression [Unknown]
  - Suicidal ideation [Unknown]
  - Drug intolerance [Unknown]
  - Pain [Unknown]
  - Nausea [Unknown]
  - Pyrexia [Unknown]
  - Diarrhoea [Unknown]
  - Back pain [Unknown]
  - Neck pain [Unknown]
  - Hyperaesthesia [Unknown]
  - Hypotonia [Unknown]
  - Hypokinesia [Unknown]
  - Oedema [Unknown]
  - Peripheral coldness [Unknown]
  - Hyperhidrosis [Unknown]
  - Skin atrophy [Unknown]
  - Joint contracture [Unknown]
  - Allodynia [Unknown]
  - Muscular weakness [Unknown]
